FAERS Safety Report 10424135 (Version 1)
Quarter: 2014Q3

REPORT INFORMATION
  Report Type: Spontaneous
  Country: NO (occurrence: NO)
  Receive Date: 20140902
  Receipt Date: 20140902
  Transmission Date: 20150326
  Serious: Yes (Hospitalization, Disabling)
  Sender: FDA-Public Use
  Company Number: NO-009507513-1409NOR000242

PATIENT
  Age: 31 Year
  Sex: Male

DRUGS (11)
  1. SENDOXAN [Concomitant]
     Active Substance: CYCLOPHOSPHAMIDE
  2. ALLOPUR [Concomitant]
     Active Substance: ALLOPURINOL
  3. ZOFRAN [Concomitant]
     Active Substance: ONDANSETRON HYDROCHLORIDE
  4. EMEND [Suspect]
     Active Substance: APREPITANT
     Indication: NAUSEA
     Dosage: 125 MG, DAILY
     Route: 048
     Dates: start: 20140523, end: 20140523
  5. BUSULFAN [Concomitant]
     Active Substance: BUSULFAN
  6. DEXAMETHASONE. [Concomitant]
     Active Substance: DEXAMETHASONE
     Dosage: UNK
     Route: 048
  7. MESNA. [Concomitant]
     Active Substance: MESNA
  8. KETORAX [Concomitant]
     Active Substance: KETOBEMIDONE HYDROCHLORIDE
  9. EMEND [Suspect]
     Active Substance: APREPITANT
     Indication: NAUSEA
     Dosage: 80 MG,DAILY
     Route: 048
     Dates: start: 20140524, end: 20140525
  10. AFIPRAN [Concomitant]
  11. EPINAT [Concomitant]

REACTIONS (4)
  - Mucosal inflammation [Recovered/Resolved with Sequelae]
  - Mucosal haemorrhage [Recovered/Resolved with Sequelae]
  - Skin toxicity [Unknown]
  - Pain [Recovered/Resolved with Sequelae]

NARRATIVE: CASE EVENT DATE: 2014
